FAERS Safety Report 10546597 (Version 1)
Quarter: 2014Q4

REPORT INFORMATION
  Report Type: Report from Study
  Country: US (occurrence: US)
  Receive Date: 20141027
  Receipt Date: 20141027
  Transmission Date: 20150529
  Serious: No
  Sender: FDA-Public Use
  Company Number: US-ABBVIE-14P-163-1198192-00

PATIENT
  Age: 36 Year
  Sex: Female

DRUGS (1)
  1. LUPRON [Suspect]
     Active Substance: LEUPROLIDE ACETATE
     Indication: PRODUCT USED FOR UNKNOWN INDICATION
     Dates: start: 201308

REACTIONS (8)
  - Migraine [Unknown]
  - Chills [Unknown]
  - Muscle contractions involuntary [Unknown]
  - Abnormal dreams [Unknown]
  - Dizziness [Unknown]
  - Dehydration [Unknown]
  - Pyrexia [Unknown]
  - Dyspnoea [Unknown]

NARRATIVE: CASE EVENT DATE: 20140131
